FAERS Safety Report 21301831 (Version 1)
Quarter: 2022Q3

REPORT INFORMATION
  Report Type: Spontaneous
  Country: US (occurrence: US)
  Receive Date: 20220907
  Receipt Date: 20220907
  Transmission Date: 20221027
  Serious: No
  Sender: FDA-Public Use
  Company Number: US-PFIZER INC-202201119050

PATIENT
  Weight: 82.993 kg

DRUGS (1)
  1. PAXLOVID [Suspect]
     Active Substance: NIRMATRELVIR\RITONAVIR
     Indication: COVID-19 treatment
     Dosage: UNK
     Dates: start: 20220831, end: 20220903

REACTIONS (7)
  - Dysgeusia [Unknown]
  - Diarrhoea [Recovered/Resolved]
  - Dysphonia [Unknown]
  - Drug hypersensitivity [Unknown]
  - Lip swelling [Unknown]
  - Gingival swelling [Unknown]
  - Dyspnoea [Unknown]

NARRATIVE: CASE EVENT DATE: 20220831
